FAERS Safety Report 9242915 (Version 2)
Quarter: 2013Q2

REPORT INFORMATION
  Report Type: Spontaneous
  Country: FR (occurrence: FR)
  Receive Date: 20130419
  Receipt Date: 20130516
  Transmission Date: 20140414
  Serious: Yes (Other)
  Sender: FDA-Public Use
  Company Number: FR-EISAI INC-E2090-02608-SPO-FR

PATIENT
  Age: 40 Year
  Sex: Male
  Weight: 75 kg

DRUGS (6)
  1. ZONEGRAN [Suspect]
     Indication: STATUS EPILEPTICUS
     Dosage: 100 MG DAILY
     Route: 048
     Dates: start: 201204
  2. FURADOINE [Suspect]
     Indication: PRODUCT USED FOR UNKNOWN INDICATION
     Dosage: 2 UNITS DAILY
     Dates: end: 201304
  3. KEPPRA [Concomitant]
     Dosage: 1500 MG DAILY
  4. RIVOTRIL [Concomitant]
     Dosage: 21 DROPS
  5. BACLOFENE [Concomitant]
  6. LAXATIVE DRUG [Concomitant]

REACTIONS (2)
  - Gingivitis ulcerative [Recovering/Resolving]
  - Stevens-Johnson syndrome [Recovering/Resolving]
